FAERS Safety Report 5284460-2 (Version None)
Quarter: 2007Q1

REPORT INFORMATION
  Report Type: 
  Country: None (occurrence: None)
  Receive Date: 20061227
  Receipt Date: 20061121
  Transmission Date: 20070707
  Serious: Yes (Other)
  Sender: FDA-Public Use
  Company Number: 13585187

PATIENT
  Sex: Female
  Weight: 86.17 kg

DRUGS (6)
  1. EMSAM [Suspect]
     Dosage: 6 MILLIGRAM, 1 DAY
     Dates: start: 20061101
  2. VISTARIL [Concomitant]
  3. NEXIUM [Concomitant]
  4. SYNTHROID [Concomitant]
  5. ZELNORM [Concomitant]
  6. AMBEIN CR [Concomitant]

REACTIONS (1)
  - HYPERTENSION [None]
